FAERS Safety Report 24928136 (Version 1)
Quarter: 2025Q1

REPORT INFORMATION
  Report Type: Spontaneous
  Country: FR (occurrence: FR)
  Receive Date: 20250205
  Receipt Date: 20250205
  Transmission Date: 20250409
  Serious: Yes (Hospitalization, Other)
  Sender: HIKMA
  Company Number: FR-HIKMA PHARMACEUTICALS USA INC.-FR-H14001-25-00921

PATIENT

DRUGS (7)
  1. ABRAXANE [Suspect]
     Active Substance: PACLITAXEL
     Dosage: 175 MILLIGRAM, WEEKLY
     Route: 042
     Dates: start: 20240514, end: 20240813
  2. ABRAXANE [Suspect]
     Active Substance: PACLITAXEL
     Dosage: 200 MILLIGRAM, WEEKLY
     Route: 042
     Dates: start: 20240319, end: 20240423
  3. ABRAXANE [Suspect]
     Active Substance: PACLITAXEL
     Indication: Metastases to lung
     Dosage: 250 MILLIGRAM, WEEKLY
     Route: 042
     Dates: start: 20240214, end: 20240312
  4. FLUOROURACIL [Suspect]
     Active Substance: FLUOROURACIL
     Indication: Metastases to lung
     Dosage: 1200 MILLIGRAM/SQ. METER, QOW
     Route: 065
     Dates: start: 20230125, end: 20230412
  5. FLUOROURACIL [Suspect]
     Active Substance: FLUOROURACIL
     Dosage: 1200 MILLIGRAM/SQ. METER, QOW
     Route: 065
     Dates: start: 20230907, end: 20231030
  6. GEMZAR [Suspect]
     Active Substance: GEMCITABINE HYDROCHLORIDE
     Indication: Metastases to lung
     Dosage: 2000 MILLIGRAM, WEEKLY
     Route: 042
     Dates: start: 20240214, end: 20240813
  7. IRINOTECAN [Suspect]
     Active Substance: IRINOTECAN
     Indication: Metastases to lung
     Dosage: 180 MILLIGRAM/SQ. METER, QOW
     Route: 065
     Dates: start: 20230907, end: 20231030

REACTIONS (2)
  - Interstitial lung disease [Recovering/Resolving]
  - Organising pneumonia [Recovering/Resolving]

NARRATIVE: CASE EVENT DATE: 20240823
